FAERS Safety Report 5225415-3 (Version None)
Quarter: 2007Q1

REPORT INFORMATION
  Report Type: 
  Country: None (occurrence: None)
  Receive Date: 20070131
  Receipt Date: 20070119
  Transmission Date: 20070707
  Serious: Yes (Other)
  Sender: FDA-Public Use
  Company Number: GB-PFIZER INC-2007004037

PATIENT
  Age: 67 Year
  Sex: Female

DRUGS (7)
  1. LIPITOR [Suspect]
     Indication: BLOOD CHOLESTEROL INCREASED
     Route: 048
  2. METFORMIN HCL [Concomitant]
     Route: 048
  3. ATENOLOL [Concomitant]
     Route: 048
  4. CO-CODAMOL [Concomitant]
     Dosage: TEXT:8/500
     Route: 048
  5. CALCIUM [Concomitant]
     Route: 048
  6. COLECALCIFEROL [Concomitant]
     Route: 048
  7. PIOGLITAZONE [Concomitant]
     Route: 048

REACTIONS (5)
  - CONFUSIONAL STATE [None]
  - GAIT DISTURBANCE [None]
  - MUSCULOSKELETAL STIFFNESS [None]
  - MYALGIA [None]
  - PARAESTHESIA [None]
